FAERS Safety Report 6472899-9 (Version None)
Quarter: 2009Q4

REPORT INFORMATION
  Report Type: 
  Country: None (occurrence: None)
  Receive Date: 20091203
  Receipt Date: 20081220
  Transmission Date: 20100525
  Serious: No
  Sender: FDA-Public Use
  Company Number: US-AMGEN-KDL325188

PATIENT
  Sex: Female
  Weight: 88.1 kg

DRUGS (14)
  1. ENBREL [Suspect]
     Indication: RHEUMATOID ARTHRITIS
     Route: 058
     Dates: start: 20080101
  2. ENBREL [Suspect]
     Indication: OSTEOPOROSIS
  3. PREDNISONE [Concomitant]
     Dates: start: 20070401
  4. ALENDRONATE SODIUM [Concomitant]
  5. MIACALCIN [Concomitant]
     Dates: start: 20080101
  6. CALCIUM [Concomitant]
     Dates: start: 20080101
  7. VITAMIN D [Concomitant]
     Dates: start: 20080101
  8. METHOTREXATE [Concomitant]
  9. HYDROXYCHLOROQUINE SULFATE [Concomitant]
  10. HYDROCHLOROTHIAZIDE [Concomitant]
  11. LEVOTHYROXINE SODIUM [Concomitant]
  12. OMEPRAZOLE [Concomitant]
  13. PROPRANOLOL [Concomitant]
  14. WARFARIN SODIUM [Concomitant]

REACTIONS (2)
  - BACK PAIN [None]
  - RIB FRACTURE [None]
